FAERS Safety Report 8905598 (Version 2)
Quarter: 2013Q3

REPORT INFORMATION
  Report Type: Spontaneous
  Country: US (occurrence: US)
  Receive Date: 20121113
  Receipt Date: 20130911
  Transmission Date: 20140515
  Serious: No
  Sender: FDA-Public Use
  Company Number: US-ASTRAZENECA-2012SE83553

PATIENT
  Age: 66 Year
  Sex: Female
  Weight: 55.3 kg

DRUGS (3)
  1. FASLODEX [Suspect]
     Indication: BREAST CANCER METASTATIC
     Route: 030
     Dates: start: 201007
  2. FASLODEX [Suspect]
     Indication: BREAST CANCER METASTATIC
     Route: 050
     Dates: start: 201107
  3. LORAZEPAM [Concomitant]
     Indication: ANXIETY

REACTIONS (8)
  - Nasal congestion [Unknown]
  - Sinus disorder [Not Recovered/Not Resolved]
  - Rhinorrhoea [Unknown]
  - Anaemia [Not Recovered/Not Resolved]
  - Weight decreased [Not Recovered/Not Resolved]
  - Increased upper airway secretion [Unknown]
  - Hypersensitivity [Not Recovered/Not Resolved]
  - Diarrhoea [Unknown]
